FAERS Safety Report 17435888 (Version 1)
Quarter: 2020Q1

REPORT INFORMATION
  Report Type: Spontaneous
  Country: FR (occurrence: FR)
  Receive Date: 20200219
  Receipt Date: 20200219
  Transmission Date: 20200409
  Serious: Yes (Death)
  Sender: FDA-Public Use
  Company Number: FR-MYLANLABS-2020M1018449

PATIENT
  Age: 49 Year
  Sex: Male
  Weight: 56 kg

DRUGS (2)
  1. ETOPOSIDE MYLAN 20 MG/ML, SOLUTION ? DILUER POUR PERFUSION [Suspect]
     Active Substance: ETOPOSIDE
     Indication: PANCREATIC NEUROENDOCRINE TUMOUR METASTATIC
     Dosage: 522 MILLIGRAM, Q21D
     Route: 042
     Dates: start: 20191010, end: 20191127
  2. CISPLATIN MYLAN [Suspect]
     Active Substance: CISPLATIN
     Indication: PANCREATIC NEUROENDOCRINE TUMOUR METASTATIC
     Dosage: 175 MILLIGRAM, Q21D
     Route: 042
     Dates: start: 20191010, end: 20191125

REACTIONS (4)
  - Hyperammonaemia [Fatal]
  - Confusional state [Fatal]
  - Agitation [Fatal]
  - General physical health deterioration [Fatal]

NARRATIVE: CASE EVENT DATE: 20191104
